FAERS Safety Report 17355429 (Version 1)
Quarter: 2020Q1

REPORT INFORMATION
  Report Type: Spontaneous
  Country: CA (occurrence: CA)
  Receive Date: 20200131
  Receipt Date: 20200131
  Transmission Date: 20200409
  Serious: Yes (Hospitalization, Other)
  Sender: FDA-Public Use
  Company Number: CA-ALSI-202000045

PATIENT
  Age: 74 Year
  Sex: Male
  Weight: 80 kg

DRUGS (23)
  1. PARACETAMOL [Concomitant]
     Active Substance: ACETAMINOPHEN
  2. IRON SULFATE DIHYDRATE [Concomitant]
  3. OLESTYR (ANHYDROUS CHOLESTYRAMINE) [Concomitant]
  4. CALCITONIN [Concomitant]
     Active Substance: CALCITONIN
  5. AMLODIPINE [Concomitant]
     Active Substance: AMLODIPINE BESYLATE
  6. DIAMICRON (GLICLAZIDE) [Concomitant]
     Active Substance: GLICLAZIDE
  7. LANTUS [Concomitant]
     Active Substance: INSULIN GLARGINE
  8. OXYGEN. [Suspect]
     Active Substance: OXYGEN
     Indication: PRODUCT USED FOR UNKNOWN INDICATION
     Route: 045
  9. BETAHISTINE [Concomitant]
     Active Substance: BETAHISTINE
  10. METHYLPREDNISOLONE. [Concomitant]
     Active Substance: METHYLPREDNISOLONE
  11. METHOTREXATE. [Suspect]
     Active Substance: METHOTREXATE
  12. ACTEMRA [Suspect]
     Active Substance: TOCILIZUMAB
     Route: 042
  13. DOMPERIDONE [Concomitant]
     Active Substance: DOMPERIDONE
  14. IRON DEXTRAN [Concomitant]
     Active Substance: IRON DEXTRAN
  15. PRAVASTATIN. [Concomitant]
     Active Substance: PRAVASTATIN
  16. RABEPRAZOLE [Concomitant]
     Active Substance: RABEPRAZOLE
  17. RITUXIMAB. [Suspect]
     Active Substance: RITUXIMAB
  18. (DIPHENHYDRAMINE HYDROCHLORIDE) [Concomitant]
  19. GLICLAZIDE [Concomitant]
     Active Substance: GLICLAZIDE
  20. NITRO-DUR (PURE NITROGLYCERIN) [Concomitant]
  21. RAMIPRIL. [Concomitant]
     Active Substance: RAMIPRIL
  22. RISEDRONATE SODIUM. [Concomitant]
     Active Substance: RISEDRONATE SODIUM
  23. ULTRAM ER (TRAMADOL) [Concomitant]

REACTIONS (24)
  - Pneumonia [Not Recovered/Not Resolved]
  - Arthralgia [Not Recovered/Not Resolved]
  - Fall [Not Recovered/Not Resolved]
  - Anxiety [Not Recovered/Not Resolved]
  - Blood pressure abnormal [Not Recovered/Not Resolved]
  - Blood pressure increased [Not Recovered/Not Resolved]
  - Dizziness [Not Recovered/Not Resolved]
  - Infection [Not Recovered/Not Resolved]
  - Brain neoplasm [Not Recovered/Not Resolved]
  - Confusional state [Not Recovered/Not Resolved]
  - Head injury [Not Recovered/Not Resolved]
  - Neutropenia [Not Recovered/Not Resolved]
  - Weight increased [Not Recovered/Not Resolved]
  - Blood pressure diastolic decreased [Not Recovered/Not Resolved]
  - Hallucination, auditory [Not Recovered/Not Resolved]
  - Lower respiratory tract infection [Not Recovered/Not Resolved]
  - Headache [Not Recovered/Not Resolved]
  - Infusion related reaction [Not Recovered/Not Resolved]
  - Musculoskeletal stiffness [Not Recovered/Not Resolved]
  - Oxygen saturation decreased [Not Recovered/Not Resolved]
  - Prostate cancer [Not Recovered/Not Resolved]
  - Respiratory rate increased [Not Recovered/Not Resolved]
  - Epistaxis [Not Recovered/Not Resolved]
  - Wound [Not Recovered/Not Resolved]
